FAERS Safety Report 4946930-3 (Version None)
Quarter: 2006Q1

REPORT INFORMATION
  Report Type: 
  Country: None (occurrence: None)
  Receive Date: 20060317
  Receipt Date: 20060313
  Transmission Date: 20060701
  Serious: Yes (Other)
  Sender: FDA-Public Use
  Company Number: PHBS2006AR03882

PATIENT
  Age: 62 Year
  Sex: Female

DRUGS (1)
  1. ZELMAC [Suspect]
     Dosage: 2 DF, QD
     Route: 048
     Dates: start: 20060201

REACTIONS (2)
  - ABDOMINAL PAIN [None]
  - DIARRHOEA [None]
